FAERS Safety Report 24439558 (Version 1)
Quarter: 2024Q4

REPORT INFORMATION
  Report Type: Spontaneous
  Country: US (occurrence: None)
  Receive Date: 20241015
  Receipt Date: 20241015
  Transmission Date: 20250115
  Serious: Yes (Disabling, Other)
  Sender: Public
  Company Number: None

PATIENT
  Age: 54 Year
  Sex: Female
  Weight: 103.5 kg

DRUGS (3)
  1. BUPRENORPHINE HYDROCHLORIDE SUBLINGUAL [Suspect]
     Active Substance: BUPRENORPHINE HYDROCHLORIDE
     Indication: Spinal stenosis
     Dosage: FREQUENCY : 3 TIMES A DAY;?
     Route: 060
     Dates: start: 20191001
  2. BUPRENORPHINE HYDROCHLORIDE SUBLINGUAL [Suspect]
     Active Substance: BUPRENORPHINE HYDROCHLORIDE
     Indication: Spinal osteoarthritis
  3. TYLENOL [Concomitant]
     Active Substance: ACETAMINOPHEN

REACTIONS (6)
  - Tooth disorder [None]
  - Anxiety [None]
  - Fear [None]
  - Economic problem [None]
  - Tooth loss [None]
  - Gingival erythema [None]

NARRATIVE: CASE EVENT DATE: 20200801
